FAERS Safety Report 7032129-6 (Version None)
Quarter: 2010Q4

REPORT INFORMATION
  Report Type: 
  Country: None (occurrence: None)
  Receive Date: 20101007
  Receipt Date: 20100924
  Transmission Date: 20110411
  Serious: Yes (Life-Threatening, Hospitalization)
  Sender: FDA-Public Use
  Company Number: US-ELI_LILLY_AND_COMPANY-US201009007287

PATIENT
  Sex: Female

DRUGS (12)
  1. FORTEO [Suspect]
     Indication: OSTEOPOROSIS
     Dosage: 20 UG, DAILY (1/D)
  2. DITROPAN [Concomitant]
  3. NEXIUM [Concomitant]
  4. WELLBUTRIN [Concomitant]
  5. LASIX [Concomitant]
  6. ALBUTEROL [Concomitant]
  7. VENTOLIN [Concomitant]
  8. ADVAIR DISKUS 100/50 [Concomitant]
  9. SPIRIVA [Concomitant]
  10. STOOL SOFTENER [Concomitant]
  11. TRAMADOL HCL [Concomitant]
  12. MULTI-VITAMIN [Concomitant]

REACTIONS (5)
  - AMNESIA [None]
  - CHRONIC OBSTRUCTIVE PULMONARY DISEASE [None]
  - GALLBLADDER DISORDER [None]
  - HOSPITALISATION [None]
  - PALPITATIONS [None]
